FAERS Safety Report 4650565-X (Version None)
Quarter: 2005Q2

REPORT INFORMATION
  Report Type: 
  Country: None (occurrence: None)
  Receive Date: 20050428
  Receipt Date: 20050419
  Transmission Date: 20051028
  Serious: Yes (Other)
  Sender: FDA-Public Use
  Company Number: 2005062020

PATIENT
  Sex: 0

DRUGS (2)
  1. LIPITOR [Suspect]
     Indication: ILL-DEFINED DISORDER
  2. CLARITHROMYCIN [Concomitant]
     Indication: ILL-DEFINED DISORDER

REACTIONS (4)
  - COMA [None]
  - DRUG INTERACTION [None]
  - HEPATIC FAILURE [None]
  - HEPATOTOXICITY [None]
